FAERS Safety Report 11635488 (Version 1)
Quarter: 2015Q4

REPORT INFORMATION
  Report Type: Spontaneous
  Country: US (occurrence: US)
  Receive Date: 20151016
  Receipt Date: 20151016
  Transmission Date: 20160304
  Serious: No
  Sender: FDA-Public Use
  Company Number: US-SUN PHARMACEUTICAL INDUSTRIES LTD-2015US-95652

PATIENT
  Sex: Female

DRUGS (1)
  1. PSEUDOEPHEDRINE [Suspect]
     Active Substance: PSEUDOEPHEDRINE
     Indication: NASAL CONGESTION
     Dosage: 1 DF, QD
     Route: 065

REACTIONS (1)
  - Drug ineffective [Unknown]
